FAERS Safety Report 10019938 (Version 2)
Quarter: 2014Q2

REPORT INFORMATION
  Report Type: Spontaneous
  Country: US (occurrence: US)
  Receive Date: 20140318
  Receipt Date: 20140501
  Transmission Date: 20141212
  Serious: Yes (Other)
  Sender: FDA-Public Use
  Company Number: US-ABBVIE-14P-163-1211825-00

PATIENT
  Sex: Male
  Weight: 79.9 kg

DRUGS (6)
  1. ANDROGEL [Suspect]
     Indication: HYPOGONADISM
     Route: 061
     Dates: start: 2004, end: 201301
  2. ANDROGEL [Suspect]
     Indication: BLOOD TESTOSTERONE DECREASED
  3. ANDROGEL [Suspect]
     Indication: BLOOD TESTOSTERONE DECREASED
     Route: 061
     Dates: start: 201301
  4. UNKNOWN EYE DROPS [Concomitant]
     Indication: DRY EYE
  5. HYDROCODONE [Concomitant]
     Indication: BACK PAIN
  6. MULTIVITAMIN [Concomitant]
     Indication: PRODUCT USED FOR UNKNOWN INDICATION

REACTIONS (10)
  - Musculoskeletal pain [Recovered/Resolved]
  - Cataract [Recovered/Resolved]
  - Arthralgia [Recovered/Resolved]
  - Arthralgia [Recovered/Resolved]
  - Arthralgia [Recovered/Resolved]
  - Aortic occlusion [Not Recovered/Not Resolved]
  - Aortic arteriosclerosis [Not Recovered/Not Resolved]
  - Prostatomegaly [Not Recovered/Not Resolved]
  - Haemoglobin increased [Recovered/Resolved]
  - Bone pain [Not Recovered/Not Resolved]
